FAERS Safety Report 5017226-9 (Version None)
Quarter: 2006Q2

REPORT INFORMATION
  Report Type: 
  Country: None (occurrence: None)
  Receive Date: 20060414
  Receipt Date: 20060307
  Transmission Date: 20061013
  Serious: No
  Sender: FDA-Public Use
  Company Number: 2006SP001121

PATIENT
  Age: 80 Year
  Sex: Male
  Weight: 68.0396 kg

DRUGS (1)
  1. LUNESTA [Suspect]
     Indication: INSOMNIA
     Dosage: 2 MG;1X;ORAL
     Route: 048
     Dates: start: 20060304, end: 20060304

REACTIONS (2)
  - DRUG INEFFECTIVE [None]
  - INSOMNIA [None]
